FAERS Safety Report 24426984 (Version 2)
Quarter: 2024Q4

REPORT INFORMATION
  Report Type: Spontaneous
  Country: US (occurrence: US)
  Receive Date: 20241011
  Receipt Date: 20241015
  Transmission Date: 20250114
  Serious: No
  Sender: ROCHE
  Company Number: US-ROCHE-10000100599

PATIENT
  Sex: Female

DRUGS (5)
  1. VABYSMO [Suspect]
     Active Substance: FARICIMAB-SVOA
     Indication: Neovascular age-related macular degeneration
     Route: 050
  2. AVASTIN [Suspect]
     Active Substance: BEVACIZUMAB
     Indication: Neovascular age-related macular degeneration
     Route: 050
     Dates: end: 202407
  3. TYLENOL [Concomitant]
     Active Substance: ACETAMINOPHEN
  4. CALCIUM [Concomitant]
     Active Substance: CALCIUM
  5. SPIRONOLACTONE [Concomitant]
     Active Substance: SPIRONOLACTONE
     Indication: Alopecia

REACTIONS (6)
  - Off label use [Unknown]
  - Eye irritation [Unknown]
  - Osteopenia [Unknown]
  - Vision blurred [Recovered/Resolved]
  - Injection site pain [Recovered/Resolved]
  - Vitreous floaters [Recovered/Resolved]

NARRATIVE: CASE EVENT DATE: 20240501
